FAERS Safety Report 6727859-7 (Version None)
Quarter: 2010Q2

REPORT INFORMATION
  Report Type: 
  Country: None (occurrence: None)
  Receive Date: 20100517
  Receipt Date: 20100503
  Transmission Date: 20101027
  Serious: Yes (Hospitalization, Other)
  Sender: FDA-Public Use
  Company Number: US-ELI_LILLY_AND_COMPANY-US201005001043

PATIENT
  Sex: Female

DRUGS (14)
  1. FORTEO [Suspect]
     Indication: OSTEOPOROSIS
     Dosage: 20 UG, DAILY (1/D)
     Dates: start: 20090825
  2. PLAVIX [Concomitant]
  3. ASPIRIN [Concomitant]
     Dosage: 81 MG, DAILY (1/D)
  4. SYNTHROID [Concomitant]
  5. HYDROCHLOROTHIAZIDE [Concomitant]
  6. TRICOR [Concomitant]
  7. LIPITOR [Concomitant]
  8. METOPROLOL TARTRATE [Concomitant]
  9. AVAPRO [Concomitant]
  10. FOLIC ACID [Concomitant]
  11. OSCAL                              /00108001/ [Concomitant]
  12. CENTRUM SILVER [Concomitant]
  13. GLIPIZIDE [Concomitant]
  14. FISH OIL [Concomitant]

REACTIONS (2)
  - CORONARY ARTERY OCCLUSION [None]
  - MALAISE [None]
